FAERS Safety Report 6996882-X (Version None)
Quarter: 2010Q3

REPORT INFORMATION
  Report Type: 
  Country: None (occurrence: None)
  Receive Date: 20100918
  Receipt Date: 20090720
  Transmission Date: 20110219
  Serious: No
  Sender: FDA-Public Use
  Company Number: US-WYE-H10232709

PATIENT
  Sex: Female
  Weight: 74.91 kg

DRUGS (2)
  1. PREMPRO [Suspect]
     Indication: HORMONE REPLACEMENT THERAPY
     Dosage: 0.3/1.5 MG
     Route: 048
     Dates: start: 20090622
  2. SYNTHROID [Concomitant]

REACTIONS (7)
  - DEPRESSED MOOD [None]
  - HEADACHE [None]
  - INSOMNIA [None]
  - JOINT SWELLING [None]
  - METRORRHAGIA [None]
  - PAIN IN EXTREMITY [None]
  - WEIGHT INCREASED [None]
